FAERS Safety Report 6198105-0 (Version None)
Quarter: 2009Q2

REPORT INFORMATION
  Report Type: 
  Country: None (occurrence: None)
  Receive Date: 20090521
  Receipt Date: 20090505
  Transmission Date: 20091009
  Serious: Yes (Death)
  Sender: FDA-Public Use
  Company Number: PE-PFIZER INC-2009210132

PATIENT
  Age: 97 Year

DRUGS (1)
  1. LIPITOR [Suspect]
     Indication: DYSLIPIDAEMIA
     Dates: start: 20090420, end: 20090427

REACTIONS (2)
  - DEATH [None]
  - THROMBOSIS [None]
